FAERS Safety Report 4620712-4 (Version None)
Quarter: 2005Q1

REPORT INFORMATION
  Report Type: 
  Country: None (occurrence: None)
  Receive Date: 20050325
  Receipt Date: 20050321
  Transmission Date: 20050727
  Serious: Yes (Death)
  Sender: FDA-Public Use
  Company Number: 2005UW04437

PATIENT
  Age: 90 Year
  Sex: Female
  Weight: 51.255 kg

DRUGS (6)
  1. SEROQUEL [Suspect]
     Indication: AGITATION
     Dosage: 25 MG ONCE PO
     Route: 048
  2. COZAAR [Concomitant]
  3. LASIX [Concomitant]
  4. DIFLUCAN [Concomitant]
  5. ATIVAN [Concomitant]
  6. COUGH SYRUP [Concomitant]

REACTIONS (2)
  - HYPOTENSION [None]
  - RESPIRATORY ARREST [None]
